FAERS Safety Report 9165115 (Version 1)
Quarter: 2013Q1

REPORT INFORMATION
  Report Type: Spontaneous
  Country: JP (occurrence: None)
  Receive Date: 20130227
  Receipt Date: 20130227
  Transmission Date: 20140127
  Serious: Yes (Hospitalization)
  Sender: FDA-Public Use
  Company Number: INT_00221_2013

PATIENT
  Age: 80 Year
  Sex: Female

DRUGS (1)
  1. CEFTRIAXONE (CEFTRIAXONE) [Suspect]
     Dosage: 2 G [PER DAY, TAPERED DOSE, INTRAVENOUS
     Route: 042

REACTIONS (6)
  - Choreoathetosis [None]
  - Cholelithiasis [None]
  - Cholecystitis [None]
  - Altered state of consciousness [None]
  - Azotaemia [None]
  - Pain [None]
